FAERS Safety Report 10590282 (Version 2)
Quarter: 2014Q4

REPORT INFORMATION
  Report Type: Spontaneous
  Country: PT (occurrence: PT)
  Receive Date: 20141118
  Receipt Date: 20141208
  Transmission Date: 20150529
  Serious: Yes (Other)
  Sender: FDA-Public Use
  Company Number: PT-ACTAVIS-2014-24417

PATIENT
  Age: 65 Year
  Sex: Female
  Weight: 62 kg

DRUGS (4)
  1. ALENDRONIC ACID W/COLECALCIFEROL [Concomitant]
     Indication: OSTEOPOROSIS
     Dosage: 70 MG, 1/WEEK
     Route: 048
     Dates: start: 20140623, end: 20140918
  2. LOVENOX [Concomitant]
     Active Substance: ENOXAPARIN SODIUM
     Indication: DEEP VEIN THROMBOSIS
     Dosage: 60 MG, DAILY
     Route: 058
     Dates: start: 201403, end: 20140918
  3. IDEOS [Concomitant]
     Active Substance: CALCIUM CARBONATE\CHOLECALCIFEROL
     Indication: OSTEOPOROSIS
     Dosage: 1 DF, DAILY; 1250 MG+400 IU DAILY; LABORATOIRE INNOTECH INTERNATIONAL
     Route: 048
     Dates: start: 20140604, end: 20140918
  4. LETROZOL ACTAVIS [Suspect]
     Active Substance: LETROZOLE
     Indication: ADJUVANT THERAPY
     Dosage: 2.5 MG, DAILY
     Route: 048
     Dates: start: 20140604, end: 20140918

REACTIONS (5)
  - Toxic skin eruption [Recovered/Resolved]
  - Purpura [Recovered/Resolved]
  - Papule [Recovered/Resolved]
  - Rash pustular [Recovered/Resolved]
  - Generalised erythema [Recovered/Resolved]

NARRATIVE: CASE EVENT DATE: 20140918
